FAERS Safety Report 20907829 (Version 6)
Quarter: 2022Q3

REPORT INFORMATION
  Report Type: Report from Study
  Country: DE (occurrence: DE)
  Receive Date: 20220602
  Receipt Date: 20220725
  Transmission Date: 20221027
  Serious: Yes (Hospitalization)
  Sender: FDA-Public Use
  Company Number: DE-Photonamic-2022PHN00093

PATIENT
  Age: 57 Year
  Sex: Female
  Weight: 66 kg

DRUGS (12)
  1. AMINOLEVULINIC ACID HYDROCHLORIDE [Suspect]
     Active Substance: AMINOLEVULINIC ACID HYDROCHLORIDE
     Indication: Glioblastoma
     Route: 050
     Dates: start: 20220512, end: 20220512
  2. DEVICE [Suspect]
     Active Substance: DEVICE
     Indication: Glioblastoma
     Dates: start: 20220512, end: 20220512
  3. DEXAMETHASONE [Concomitant]
     Active Substance: DEXAMETHASONE
     Indication: Oedema
     Dosage: 2MG BID
     Dates: start: 20220504, end: 20220518
  4. DEXAMETHASONE [Concomitant]
     Active Substance: DEXAMETHASONE
     Indication: Oedema
     Dates: start: 20220519
  5. DEVICE [Suspect]
     Active Substance: DEVICE
     Indication: Glioblastoma
  6. DEVICE [Suspect]
     Active Substance: DEVICE
     Indication: Glioblastoma
  7. UNSPECIFIED INGREDIENT [Suspect]
     Active Substance: UNSPECIFIED INGREDIENT
     Indication: Glioblastoma
  8. DEVICE [Suspect]
     Active Substance: DEVICE
     Indication: Glioblastoma
  9. LORAZEPAM [Concomitant]
     Active Substance: LORAZEPAM
  10. CANDESARTAN [Concomitant]
     Active Substance: CANDESARTAN
  11. LEVOTHYROXINE [Concomitant]
     Active Substance: LEVOTHYROXINE
  12. PANTOPRAZOLE [Concomitant]
     Active Substance: PANTOPRAZOLE

REACTIONS (1)
  - Seizure [Recovered/Resolved]

NARRATIVE: CASE EVENT DATE: 20220518
